FAERS Safety Report 4391498-6 (Version None)
Quarter: 2004Q3

REPORT INFORMATION
  Report Type: 
  Country: None (occurrence: None)
  Receive Date: 20040707
  Receipt Date: 20031205
  Transmission Date: 20050211
  Serious: Yes (Death)
  Sender: FDA-Public Use
  Company Number: US-AMGEN-KDL053962

PATIENT
  Sex: Female
  Weight: 68.6 kg

DRUGS (7)
  1. EPOGEN [Suspect]
     Indication: PRE-EXISTING DISEASE
     Dosage: 80000 UNITS
     Route: 058
     Dates: start: 20030210, end: 20031103
  2. BLOOD CELLS, PACKED HUMAN [Concomitant]
  3. HYDREA [Concomitant]
  4. SYNTHROID [Concomitant]
  5. NEURONTIN [Concomitant]
  6. PAXIL [Concomitant]
  7. GLEEVEC [Concomitant]

REACTIONS (1)
  - DEATH [None]
